FAERS Safety Report 4570153-3 (Version None)
Quarter: 2005Q1

REPORT INFORMATION
  Report Type: 
  Country: None (occurrence: None)
  Receive Date: 20050201
  Receipt Date: 20050121
  Transmission Date: 20050727
  Serious: Yes (Other)
  Sender: FDA-Public Use
  Company Number: C-05-0004

PATIENT
  Age: 4 Year
  Sex: Female
  Weight: 19.0511 kg

DRUGS (2)
  1. PREDNISOLONE SODIUM PHOSPHATE [Suspect]
     Indication: COUGH
     Dosage: 2 TEASPOON ORALLY, TAKEN ONCE
     Route: 048
     Dates: start: 20050121
  2. PREDNISOLONE SODIUM PHOSPHATE [Suspect]
     Indication: CROUP INFECTIOUS
     Dosage: 2 TEASPOON ORALLY, TAKEN ONCE
     Route: 048
     Dates: start: 20050121

REACTIONS (2)
  - DROOLING [None]
  - THROAT IRRITATION [None]
